FAERS Safety Report 6889748-7 (Version None)
Quarter: 2010Q3

REPORT INFORMATION
  Report Type: 
  Country: None (occurrence: None)
  Receive Date: 20100730
  Receipt Date: 20080423
  Transmission Date: 20110219
  Serious: No
  Sender: FDA-Public Use
  Company Number: US-PFIZER INC-2008020363

PATIENT
  Age: 70 Year
  Sex: Female

DRUGS (11)
  1. LIPITOR [Suspect]
     Indication: BLOOD CHOLESTEROL
     Route: 048
     Dates: end: 20080101
  2. CADUET [Suspect]
     Indication: HYPERTENSION
     Dosage: 10/40 MG
     Route: 048
     Dates: start: 20071203, end: 20071208
  3. CADUET [Suspect]
     Indication: BLOOD CHOLESTEROL
  4. CADUET [Suspect]
     Indication: HYPERLIPIDAEMIA
  5. SYNTHROID [Concomitant]
  6. LASIX [Concomitant]
  7. NORVASC [Concomitant]
     Dates: end: 20071203
  8. ASPIRIN [Concomitant]
  9. VASOTEC [Concomitant]
  10. PREVACID [Concomitant]
  11. ZOLPIDEM TARTRATE [Concomitant]

REACTIONS (7)
  - DIZZINESS [None]
  - MUSCLE DISORDER [None]
  - MUSCLE STRAIN [None]
  - MYALGIA [None]
  - OEDEMA PERIPHERAL [None]
  - PAIN IN EXTREMITY [None]
  - WEIGHT INCREASED [None]
